FAERS Safety Report 6074773-9 (Version None)
Quarter: 2009Q1

REPORT INFORMATION
  Report Type: 
  Country: None (occurrence: None)
  Receive Date: 20090210
  Receipt Date: 20090126
  Transmission Date: 20090719
  Serious: Yes (Hospitalization)
  Sender: FDA-Public Use
  Company Number: AE 2009-018

PATIENT
  Age: 19 Year
  Sex: Male

DRUGS (4)
  1. FAZACLO ODT [Suspect]
     Dosage: 700 MG DAILY PO
     Route: 048
     Dates: start: 20070305, end: 20090116
  2. BENADRYL [Concomitant]
  3. DEPAKOTE [Concomitant]
  4. CLONIDINE [Concomitant]

REACTIONS (5)
  - ACNE [None]
  - AURICULAR SWELLING [None]
  - HAEMATOMA [None]
  - IRRITABILITY [None]
  - THROMBOSIS [None]
